FAERS Safety Report 23114332 (Version 1)
Quarter: 2023Q4

REPORT INFORMATION
  Report Type: Spontaneous
  Country: CH (occurrence: CH)
  Receive Date: 20231027
  Receipt Date: 20231027
  Transmission Date: 20240110
  Serious: Yes (Other)
  Sender: FDA-Public Use
  Company Number: CH-Accord-379611

PATIENT
  Age: 61 Year
  Sex: Female

DRUGS (2)
  1. METHOTREXATE [Suspect]
     Active Substance: METHOTREXATE
     Indication: Granuloma annulare
     Dosage: 7.5-17.5 MG S.C./WEEK
     Route: 058
  2. TACROLIMUS [Suspect]
     Active Substance: TACROLIMUS
     Indication: Granuloma annulare
     Route: 061

REACTIONS (6)
  - Drug ineffective [Unknown]
  - Granuloma annulare [Recovered/Resolved]
  - Hepatic enzyme abnormal [Unknown]
  - Off label use [Unknown]
  - Skin lesion [Recovered/Resolved]
  - Condition aggravated [Recovered/Resolved]
